FAERS Safety Report 10565000 (Version 1)
Quarter: 2014Q4

REPORT INFORMATION
  Report Type: Spontaneous
  Country: SE (occurrence: None)
  Receive Date: 20141103
  Receipt Date: 20141103
  Transmission Date: 20150529
  Serious: Yes (Hospitalization)
  Sender: FDA-Public Use
  Company Number: 2014SE010695

PATIENT
  Age: 54 Year
  Sex: Female
  Weight: 58 kg

DRUGS (7)
  1. EMEND [Concomitant]
     Active Substance: APREPITANT
  2. ALOXI [Suspect]
     Active Substance: PALONOSETRON HYDROCHLORIDE
     Indication: PROPHYLAXIS OF NAUSEA AND VOMITING
     Dosage: SINGLE
     Route: 042
     Dates: start: 20141022, end: 20141022
  3. EPIRUBICIN (EPIRUBICIN) [Concomitant]
  4. BETAMETHASONE (BETAMETHASONE) [Concomitant]
  5. TRASTUZUMAB (TRASTUZUMAB) [Concomitant]
     Active Substance: TRASTUZUMAB
  6. CYCLOPHOSPHAMID (CYCLOPHOSPHAMIDE) [Concomitant]
  7. 5-FU (FLUOROURACIL) [Concomitant]
     Active Substance: FLUOROURACIL

REACTIONS (5)
  - Presyncope [None]
  - Hypotension [None]
  - Bradycardia [None]
  - Nausea [None]
  - Headache [None]

NARRATIVE: CASE EVENT DATE: 20141022
